FAERS Safety Report 9186071 (Version 2)
Quarter: 2013Q1

REPORT INFORMATION
  Report Type: Spontaneous
  Country: PH (occurrence: PH)
  Receive Date: 20130325
  Receipt Date: 20130329
  Transmission Date: 20140127
  Serious: Yes (Death)
  Sender: FDA-Public Use
  Company Number: PH-009507513-1303PHL010529

PATIENT
  Age: 67 Year
  Sex: Female

DRUGS (1)
  1. COZAAR [Suspect]
     Indication: HYPERTENSION
     Dosage: 1 TABLET, QD
     Route: 048
     Dates: start: 201103

REACTIONS (1)
  - Myocardial infarction [Fatal]
